FAERS Safety Report 6993714-0 (Version None)
Quarter: 2010Q3

REPORT INFORMATION
  Report Type: 
  Country: None (occurrence: None)
  Receive Date: 20100917
  Receipt Date: 20070810
  Transmission Date: 20110219
  Serious: Yes (Hospitalization)
  Sender: FDA-Public Use
  Company Number: US-ASTRAZENECA-2006UW22403

PATIENT
  Age: 9806 Day
  Sex: Female
  Weight: 79.4 kg

DRUGS (6)
  1. SEROQUEL [Suspect]
     Indication: BIPOLAR DISORDER
     Route: 048
     Dates: start: 20051227
  2. SEROQUEL [Suspect]
     Indication: DEPRESSION
     Route: 048
     Dates: start: 20051227
  3. SEROQUEL [Suspect]
     Indication: SLEEP DISORDER
     Route: 048
     Dates: start: 20051227
  4. PROTONIX [Concomitant]
     Route: 042
     Dates: start: 20051228
  5. ATARAX [Concomitant]
     Indication: SLEEP DISORDER
     Route: 048
     Dates: start: 20051228
  6. TOPAMAX [Concomitant]
     Route: 048
     Dates: start: 20051228

REACTIONS (2)
  - PANCREATITIS [None]
  - PANCREATITIS ACUTE [None]
